FAERS Safety Report 15556345 (Version 1)
Quarter: 2018Q4

REPORT INFORMATION
  Report Type: Report from Study
  Country: DE (occurrence: DE)
  Receive Date: 20181026
  Receipt Date: 20181026
  Transmission Date: 20190205
  Serious: Yes (Other)
  Sender: FDA-Public Use
  Company Number: DE-AMGEN-DEUNI2018150089

PATIENT
  Sex: Male

DRUGS (1)
  1. ENBREL [Suspect]
     Active Substance: ETANERCEPT
     Indication: ANKYLOSING SPONDYLITIS
     Dosage: 50 MG, 1X/WEEK
     Route: 065
     Dates: start: 2012

REACTIONS (5)
  - Tonsillitis [Recovered/Resolved]
  - Aphthous ulcer [Recovered/Resolved]
  - Feeling cold [Not Recovered/Not Resolved]
  - Infection susceptibility increased [Recovered/Resolved]
  - Nasal congestion [Not Recovered/Not Resolved]
